FAERS Safety Report 5160367-6 (Version None)
Quarter: 2006Q4

REPORT INFORMATION
  Report Type: 
  Country: None (occurrence: None)
  Receive Date: 20061121
  Receipt Date: 20061003
  Transmission Date: 20070319
  Serious: Yes (Other)
  Sender: FDA-Public Use
  Company Number: US-2006-035792

PATIENT
  Age: 63 Year
  Sex: Female

DRUGS (1)
  1. BETASERON [Suspect]
     Indication: MULTIPLE SCLEROSIS
     Dosage: 8MIU, EVERY 2D, SUBCUTANEOUS
     Route: 058
     Dates: start: 19940425, end: 20060904

REACTIONS (1)
  - CROHN'S DISEASE [None]
